FAERS Safety Report 10011691 (Version 1)
Quarter: 2014Q1

REPORT INFORMATION
  Report Type: Spontaneous
  Country: US (occurrence: None)
  Receive Date: 20140304
  Receipt Date: 20140304
  Transmission Date: 20141002
  Serious: Yes (Other)
  Sender: FDA-Public Use
  Company Number: RB-56312-2013

PATIENT
  Age: 25 Year
  Sex: Male

DRUGS (1)
  1. SUBOXONE [Suspect]
     Indication: PRODUCT USED FOR UNKNOWN INDICATION
     Dosage: DOSING DETAILS UNKNOWN

REACTIONS (10)
  - Liver disorder [None]
  - Hypersensitivity [None]
  - Yellow skin [None]
  - Faeces pale [None]
  - Rash [None]
  - Tooth erosion [None]
  - Oral infection [None]
  - Wrong technique in drug usage process [None]
  - Underdose [None]
  - Decreased appetite [None]
